FAERS Safety Report 24673678 (Version 2)
Quarter: 2024Q4

REPORT INFORMATION
  Report Type: Spontaneous
  Country: GB (occurrence: GB)
  Receive Date: 20241128
  Receipt Date: 20241128
  Transmission Date: 20250114
  Serious: Yes (Other)
  Sender: TEVA
  Company Number: None

PATIENT
  Sex: Female
  Weight: 79 kg

DRUGS (10)
  1. PROPRANOLOL [Suspect]
     Active Substance: PROPRANOLOL HYDROCHLORIDE
     Indication: Anxiety
     Route: 065
  2. SUMATRIPTAN [Concomitant]
     Active Substance: SUMATRIPTAN
     Indication: Cervicogenic headache
  3. HYDROXOCOBALAMIN [Concomitant]
     Active Substance: HYDROXOCOBALAMIN
     Indication: Pernicious anaemia
  4. VAGIFEM [Concomitant]
     Active Substance: ESTRADIOL
     Indication: Cystitis interstitial
     Dates: start: 20240705
  5. HYDROXYZINE [Suspect]
     Active Substance: HYDROXYZINE HYDROCHLORIDE
     Indication: Cystitis interstitial
     Dosage: 25MG
     Route: 065
     Dates: start: 20240706, end: 20240707
  6. MORPHINE SULFATE [Suspect]
     Active Substance: MORPHINE SULFATE
     Indication: Spinal stenosis
     Route: 065
  7. PRAMIPEXOLE [Concomitant]
     Active Substance: PRAMIPEXOLE\PRAMIPEXOLE DIHYDROCHLORIDE
     Indication: Product used for unknown indication
  8. BETAHISTINE [Concomitant]
     Active Substance: BETAHISTINE
     Indication: Balance disorder
  9. NORTRIPTYLINE [Concomitant]
     Active Substance: NORTRIPTYLINE
     Indication: Spinal stenosis
  10. HIPREX [Concomitant]
     Active Substance: METHENAMINE HIPPURATE
     Indication: Cystitis interstitial
     Dates: start: 20240705, end: 20240720

REACTIONS (2)
  - Drug interaction [Unknown]
  - Sedation [Recovered/Resolved]

NARRATIVE: CASE EVENT DATE: 20240706
